FAERS Safety Report 6585443-2 (Version None)
Quarter: 2010Q1

REPORT INFORMATION
  Report Type: 
  Country: None (occurrence: None)
  Receive Date: 20100217
  Receipt Date: 20100215
  Transmission Date: 20100710
  Serious: Yes (Other)
  Sender: FDA-Public Use
  Company Number: B0633898A

PATIENT
  Age: 62 Year
  Sex: Female

DRUGS (1)
  1. ZINNAT [Suspect]
     Indication: DRUG USE FOR UNKNOWN INDICATION
     Dosage: 1TAB SINGLE DOSE
     Route: 048
     Dates: start: 20100201, end: 20100201

REACTIONS (2)
  - ANAPHYLACTIC SHOCK [None]
  - LOSS OF CONSCIOUSNESS [None]
